FAERS Safety Report 8238980-9 (Version None)
Quarter: 2012Q1

REPORT INFORMATION
  Report Type: 
  Country: None (occurrence: None)
  Receive Date: 20120327
  Receipt Date: 20120319
  Transmission Date: 20120608
  Serious: Yes (Hospitalization)
  Sender: FDA-Public Use
  Company Number: PHHO2012RU004578

PATIENT
  Age: 60 Year
  Sex: Male
  Weight: 87 kg

DRUGS (6)
  1. ZOMETA [Suspect]
     Indication: METASTASES TO BONE
     Dosage: ONCE A MONTH
     Route: 042
     Dates: start: 20090709, end: 20111114
  2. ROFERON-A [Suspect]
     Indication: RENAL CELL CARCINOMA
     Dosage: 9 MIU, TIW
     Route: 058
     Dates: start: 20091021
  3. KETOSTERIL [Concomitant]
     Indication: RENAL FAILURE CHRONIC
     Dosage: UNK
     Dates: start: 20110606
  4. CAPTOPRIL [Concomitant]
     Indication: HYPERTENSION
     Dosage: UNK
     Dates: start: 20091115
  5. AVASTIN [Suspect]
     Indication: RENAL CELL CARCINOMA
     Dosage: 10 MG/KG, EVERY OTHER WEEK
     Route: 042
     Dates: start: 20091021, end: 20111214
  6. METOPROLOL SUCCINATE [Concomitant]
     Indication: HYPERTENSION
     Dosage: UNK
     Dates: start: 20091115

REACTIONS (1)
  - CELLULITIS [None]
